FAERS Safety Report 4877973-6 (Version None)
Quarter: 2006Q1

REPORT INFORMATION
  Report Type: 
  Country: None (occurrence: None)
  Receive Date: 20060110
  Receipt Date: 20051230
  Transmission Date: 20060701
  Serious: Yes (Other)
  Sender: FDA-Public Use
  Company Number: 2005168885

PATIENT
  Sex: Female
  Weight: 68.0396 kg

DRUGS (6)
  1. CELEBREX [Suspect]
     Indication: ARTHRITIS
     Dosage: 400 MG (200 MG, 2 IN 1 D)
  2. ZYRTEC [Suspect]
     Indication: ALLERGIC SINUSITIS
     Dosage: 10 MG (10 MG, 1 IN 1 D)
  3. SULAR [Concomitant]
  4. EVISTA [Concomitant]
  5. HYDROCODONE BITARTRATE [Concomitant]
  6. MEGACE (MEGESTEROL ACETATE) [Concomitant]

REACTIONS (4)
  - ALLERGIC SINUSITIS [None]
  - ARTHRITIS [None]
  - CONDITION AGGRAVATED [None]
  - HIP ARTHROPLASTY [None]
